FAERS Safety Report 5217511-1 (Version None)
Quarter: 2007Q1

REPORT INFORMATION
  Report Type: 
  Country: None (occurrence: None)
  Receive Date: 20070124
  Receipt Date: 20060811
  Transmission Date: 20070707
  Serious: No
  Sender: FDA-Public Use
  Company Number: US-BRISTOL-MYERS SQUIBB COMPANY-13226808

PATIENT
  Sex: Female
  Weight: 77 kg

DRUGS (1)
  1. SERZONE [Suspect]
     Indication: DEPRESSION
     Route: 048

REACTIONS (8)
  - ABDOMINAL DISCOMFORT [None]
  - ANOREXIA [None]
  - COGNITIVE DISORDER [None]
  - CONSTIPATION [None]
  - INSOMNIA [None]
  - MULTIPLE SCLEROSIS [None]
  - PARAESTHESIA [None]
  - WEIGHT DECREASED [None]
